FAERS Safety Report 20728000 (Version 1)
Quarter: 2022Q2

REPORT INFORMATION
  Report Type: Report from Study
  Country: US (occurrence: US)
  Receive Date: 20220419
  Receipt Date: 20220419
  Transmission Date: 20220721
  Serious: Yes (Life-Threatening, Hospitalization)
  Sender: FDA-Public Use
  Company Number: US-ABBVIE-22K-163-4363721-00

PATIENT
  Sex: Male

DRUGS (1)
  1. IMBRUVICA [Suspect]
     Active Substance: IBRUTINIB
     Indication: B-cell small lymphocytic lymphoma
     Route: 048
     Dates: start: 201804

REACTIONS (4)
  - Cerebrovascular accident [Unknown]
  - Hemiparesis [Unknown]
  - Dysphagia [Unknown]
  - Gastrointestinal tube insertion [Unknown]
